FAERS Safety Report 8033341-X (Version None)
Quarter: 2012Q1

REPORT INFORMATION
  Report Type: 
  Country: None (occurrence: None)
  Receive Date: 20120110
  Receipt Date: 20120103
  Transmission Date: 20120608
  Serious: Yes (Hospitalization)
  Sender: FDA-Public Use
  Company Number: DK-PFIZER INC-2011269919

PATIENT
  Age: 64 Year
  Sex: Male
  Weight: 81 kg

DRUGS (25)
  1. SULFAMETHOXAZOLE AND TRIMETHOPRIM [Concomitant]
     Indication: PROPHYLAXIS
     Dosage: 400 MG, UNK
     Route: 048
     Dates: start: 20110628
  2. LACTULOSE [Concomitant]
     Indication: CONSTIPATION
     Dosage: 25 ML, UNK
     Route: 048
  3. MOVIPREP [Concomitant]
     Indication: CONSTIPATION
  4. RITUXIMAB [Suspect]
     Dosage: 765 MG, QD
     Route: 042
     Dates: start: 20110503
  5. RITUXIMAB [Suspect]
     Dosage: 750 MG, QD
     Route: 042
     Dates: start: 20110803
  6. PREDNISONE TAB [Suspect]
     Dosage: 8800 MG, 1X/DAY
     Dates: start: 20110803
  7. AMLODIPINE [Concomitant]
     Indication: HYPERTENSION
     Dosage: UNK
     Route: 048
     Dates: start: 20110415
  8. ALLOPURINOL [Concomitant]
     Indication: PROPHYLAXIS
     Dosage: UNK
     Route: 048
     Dates: start: 20110412, end: 20110708
  9. MORPHINE [Concomitant]
     Indication: PAIN
     Dosage: 10 MG, UNK
     Route: 048
     Dates: start: 20110101
  10. ACYCLOVIR [Concomitant]
     Indication: PROPHYLAXIS
     Dosage: 400 MG, UNK
     Route: 048
     Dates: start: 20110412
  11. DOXORUBICIN HCL [Suspect]
     Dosage: UNK
     Dates: start: 20110628
  12. LANSOPRAZOLE [Concomitant]
     Indication: PROPHYLAXIS
     Dosage: UNK
     Route: 048
     Dates: start: 20110101
  13. ENOXAPARIN SODIUM [Concomitant]
     Indication: PAIN
     Dosage: UNK
     Route: 058
     Dates: start: 20110826
  14. NEUPOGEN [Suspect]
     Dosage: UNK MG, 1X/DAY
     Dates: start: 20110804
  15. RITUXIMAB [Suspect]
     Indication: DIFFUSE LARGE B-CELL LYMPHOMA
     Dosage: 750 MG, QD
     Route: 042
     Dates: start: 20110426
  16. VINCRISTINE [Suspect]
     Indication: DIFFUSE LARGE B-CELL LYMPHOMA
     Dosage: 2 MG, QD
     Route: 042
     Dates: start: 20110426
  17. CYCLOPHOSPHAMIDE [Suspect]
     Indication: DIFFUSE LARGE B-CELL LYMPHOMA
     Dosage: 1500 MG, QD
     Route: 042
     Dates: start: 20110426
  18. FUROSEMIDE [Concomitant]
     Indication: POLYURIA
     Dosage: 40 MG, UNK
     Route: 048
  19. DOXORUBICIN HCL [Suspect]
     Indication: DIFFUSE LARGE B-CELL LYMPHOMA
     Dosage: 100 MG, 1X/DAY
     Route: 042
     Dates: start: 20110426
  20. NEUPOGEN [Suspect]
     Indication: DIFFUSE LARGE B-CELL LYMPHOMA
     Dosage: 6 MG, UNK
     Route: 058
     Dates: start: 20110427
  21. PREDNISONE TAB [Suspect]
     Dosage: 100 MG, 1X/DAY
     Dates: start: 20110628
  22. SENNOSIDE A+B [Concomitant]
     Indication: PRODUCT USED FOR UNKNOWN INDICATION
  23. MORPHINE SULFATE [Concomitant]
     Indication: PRODUCT USED FOR UNKNOWN INDICATION
  24. NEUPOGEN [Suspect]
     Dosage: UNK
     Dates: start: 20110629
  25. PREDNISONE TAB [Suspect]
     Indication: DIFFUSE LARGE B-CELL LYMPHOMA
     Dosage: 100 MG, QD
     Route: 048
     Dates: start: 20110426

REACTIONS (5)
  - PULMONARY EMBOLISM [None]
  - PYREXIA [None]
  - MUSCLE RUPTURE [None]
  - FEBRILE NEUTROPENIA [None]
  - PNEUMONIA [None]
